FAERS Safety Report 7931502-9 (Version None)
Quarter: 2011Q4

REPORT INFORMATION
  Report Type: 
  Country: None (occurrence: None)
  Receive Date: 20111121
  Receipt Date: 20111121
  Transmission Date: 20120403
  Serious: Yes (Other)
  Sender: FDA-Public Use
  Company Number: None

PATIENT
  Age: 52 Year
  Sex: Female
  Weight: 149.68 kg

DRUGS (1)
  1. TEKTURNA HCT [Suspect]
     Indication: HYPERTENSION

REACTIONS (3)
  - PRODUCT QUALITY ISSUE [None]
  - DYSPNOEA [None]
  - OEDEMA PERIPHERAL [None]
